FAERS Safety Report 6554425-9 (Version None)
Quarter: 2010Q1

REPORT INFORMATION
  Report Type: 
  Country: None (occurrence: None)
  Receive Date: 20100127
  Receipt Date: 20100119
  Transmission Date: 20100710
  Serious: Yes (Hospitalization)
  Sender: FDA-Public Use
  Company Number: GXKR2010GB00909

PATIENT
  Age: 39 Year
  Sex: Male

DRUGS (8)
  1. DIAZEPAM [Suspect]
     Indication: DEPENDENCE
     Dosage: 10 MG, QD
     Route: 048
     Dates: start: 20030812
  2. DICLOFENAC (NGX) [Suspect]
     Dosage: 75 MG, BID
     Route: 048
     Dates: start: 20030812
  3. PHENOXYMETHYLPENICILLIN [Suspect]
     Indication: SPLENECTOMY
     Dosage: 250 MG, BID
     Route: 065
     Dates: start: 20031111
  4. TADALAFIL [Suspect]
     Indication: ERECTILE DYSFUNCTION
     Dosage: 20 MG, UNK
     Route: 048
     Dates: start: 20050127
  5. CO-TRIMOXAZOLE [Suspect]
     Indication: HIV TEST POSITIVE
     Dosage: 480 MG, QD
     Route: 065
     Dates: start: 20040303
  6. VENLAFAXINE HCL [Suspect]
     Dosage: UNK
     Route: 048
     Dates: start: 20030812
  7. MORPHINE SULFATE [Suspect]
     Dosage: 160 MG, BID
     Route: 065
     Dates: start: 20030812
  8. ZYBAN [Suspect]
     Indication: EX-TOBACCO USER
     Dosage: 150 MG, UNK
     Route: 048
     Dates: start: 20050127

REACTIONS (1)
  - ACUTE MYOCARDIAL INFARCTION [None]
